FAERS Safety Report 23451939 (Version 1)
Quarter: 2024Q1

REPORT INFORMATION
  Report Type: Spontaneous
  Country: US (occurrence: None)
  Receive Date: 20240127
  Receipt Date: 20240127
  Transmission Date: 20240410
  Serious: Yes (Other)
  Sender: FDA-Public Use
  Company Number: None

PATIENT
  Age: 71 Year
  Sex: Female
  Weight: 58.5 kg

DRUGS (2)
  1. OSELTAMIVIR PHOSPHATE [Suspect]
     Active Substance: OSELTAMIVIR PHOSPHATE
     Indication: Influenza
     Dosage: OTHER QUANTITY : 10 CAPSULE(S);?FREQUENCY : TWICE A DAY;?
     Route: 048
     Dates: start: 20240126, end: 20240127
  2. Amlodipine Besolate [Concomitant]

REACTIONS (3)
  - Diarrhoea [None]
  - Muscle spasms [None]
  - Vomiting [None]

NARRATIVE: CASE EVENT DATE: 20240127
